FAERS Safety Report 6101758-6 (Version None)
Quarter: 2009Q1

REPORT INFORMATION
  Report Type: 
  Country: None (occurrence: None)
  Receive Date: 20090304
  Receipt Date: 20090227
  Transmission Date: 20090719
  Serious: Yes (Other)
  Sender: FDA-Public Use
  Company Number: B0563009A

PATIENT
  Age: 49 Year
  Sex: Female

DRUGS (2)
  1. WELLBUTRIN XR [Suspect]
     Indication: DEPRESSION
     Dosage: 100TAB PER DAY
     Route: 065
  2. TRAZOLAN [Concomitant]
     Indication: DEPRESSION
     Route: 065

REACTIONS (5)
  - BLOOD PRESSURE SYSTOLIC DECREASED [None]
  - CARDIAC FAILURE [None]
  - EPILEPSY [None]
  - INTENTIONAL OVERDOSE [None]
  - POISONING [None]
